FAERS Safety Report 14658823 (Version 2)
Quarter: 2018Q2

REPORT INFORMATION
  Report Type: Spontaneous
  Country: US (occurrence: US)
  Receive Date: 20180320
  Receipt Date: 20180413
  Transmission Date: 20180711
  Serious: No
  Sender: FDA-Public Use
  Company Number: US-TEVA-2018-US-871789

PATIENT
  Sex: Female

DRUGS (3)
  1. DULOXETINE. [Concomitant]
     Active Substance: DULOXETINE
  2. BUPROPION. [Concomitant]
     Active Substance: BUPROPION
  3. TAMOXIFEN [Suspect]
     Active Substance: TAMOXIFEN
     Indication: BREAST CANCER
     Route: 065
     Dates: start: 2009, end: 20180308

REACTIONS (12)
  - Chills [Unknown]
  - Tremor [Unknown]
  - Irritability [Unknown]
  - Palpitations [Unknown]
  - Crying [Unknown]
  - Anxiety [Unknown]
  - Mood swings [Unknown]
  - Decreased appetite [Unknown]
  - Back pain [Unknown]
  - Drug withdrawal syndrome [Unknown]
  - Insomnia [Unknown]
  - Visual impairment [Unknown]

NARRATIVE: CASE EVENT DATE: 20180308
